FAERS Safety Report 9648535 (Version 2)
Quarter: 2013Q4

REPORT INFORMATION
  Report Type: Spontaneous
  Country: US (occurrence: US)
  Receive Date: 20131028
  Receipt Date: 20131028
  Transmission Date: 20140711
  Serious: Yes (Death, Hospitalization, Other)
  Sender: FDA-Public Use
  Company Number: US-SHIRE-ALL1-2013-06175

PATIENT
  Age: 78 Year
  Sex: Male

DRUGS (1)
  1. FOSRENOL [Suspect]
     Indication: RENAL FAILURE CHRONIC
     Dosage: 1000 MG TABLET, 3X/DAY:TID
     Route: 048

REACTIONS (5)
  - Head injury [Fatal]
  - Haemorrhage intracranial [Fatal]
  - Oesophageal squamous cell carcinoma [Unknown]
  - Melaena [Unknown]
  - Fall [Recovered/Resolved]
